FAERS Safety Report 7107685-X (Version None)
Quarter: 2010Q4

REPORT INFORMATION
  Report Type: 
  Country: None (occurrence: None)
  Receive Date: 20101117
  Receipt Date: 20101105
  Transmission Date: 20110411
  Serious: Yes (Other)
  Sender: FDA-Public Use
  Company Number: US-JNJFOC-20101103636

PATIENT
  Sex: Male
  Weight: 90.72 kg

DRUGS (10)
  1. DURAGESIC-100 [Suspect]
     Indication: BACK PAIN
     Dosage: 25 UG/HR+25 UG/HR+25 UG/HR
     Route: 062
  2. DURAGESIC-100 [Suspect]
     Dosage: 100 UG/HR+ 25 UG/HR
     Route: 062
  3. DURAGESIC-100 [Suspect]
     Indication: SPINAL FRACTURE
     Dosage: 100 UG/HR+ 25 UG/HR
     Route: 062
  4. DURAGESIC-100 [Suspect]
     Dosage: 25 UG/HR+25 UG/HR+25 UG/HR
     Route: 062
  5. DURAGESIC-100 [Suspect]
     Indication: PAIN IN EXTREMITY
     Dosage: 25 UG/HR+25 UG/HR+25 UG/HR
     Route: 062
  6. DURAGESIC-100 [Suspect]
     Dosage: 100 UG/HR+ 25 UG/HR
     Route: 062
  7. NUBAIN [Suspect]
     Indication: WITHDRAWAL SYNDROME
     Dosage: 1 TIME
     Route: 030
  8. NEURONTIN [Concomitant]
     Indication: PAIN
     Route: 048
  9. ATIVAN [Concomitant]
     Route: 048
  10. VICODIN [Concomitant]
     Indication: PAIN
     Route: 048

REACTIONS (4)
  - DRUG DOSE OMISSION [None]
  - PAIN [None]
  - TREMOR [None]
  - WITHDRAWAL SYNDROME [None]
